FAERS Safety Report 8906716 (Version 1)
Quarter: 2012Q4

REPORT INFORMATION
  Report Type: 
  Country: FR (occurrence: FR)
  Receive Date: 20121114
  Receipt Date: 20121114
  Transmission Date: 20130627
  Serious: Yes (Hospitalization)
  Sender: FDA-Public Use
  Company Number: FR-PFIZER INC-2012280533

PATIENT
  Age: 52 Year
  Sex: Male

DRUGS (12)
  1. SOLU-MEDROL [Suspect]
     Indication: ENCEPHALITIS
     Dosage: UNK
     Route: 042
     Dates: start: 20120811, end: 20120816
  2. SOLU-MEDROL [Suspect]
     Dosage: UNK
     Route: 042
     Dates: start: 20120827, end: 20120903
  3. OCTAGAM [Suspect]
     Indication: ENCEPHALITIS
     Dosage: UNK
     Route: 042
     Dates: start: 20120811, end: 20120816
  4. OCTAGAM [Suspect]
     Dosage: UNK
     Route: 042
     Dates: start: 20120827, end: 20120903
  5. MABTHERA [Suspect]
     Indication: ENCEPHALITIS
     Dosage: 750 mg, single
     Route: 042
     Dates: start: 20120921, end: 20120921
  6. MABTHERA [Suspect]
     Dosage: 750 mg, single
     Route: 042
     Dates: start: 20120928, end: 20120928
  7. INEXIUM [Concomitant]
     Dosage: 20 UNK, 1 dosage form in the evening
  8. SPECIAFOLDINE [Concomitant]
     Dosage: 5 mg, 1 dosage form three times per day
  9. PRINCI-B [Concomitant]
     Dosage: 1 dosage form three times per day
  10. VALIUM [Concomitant]
     Dosage: 50 drops/day
  11. EPITOMAX [Concomitant]
     Dosage: 50 UNK, 1 dosage form in the morning and in the evening
  12. TRILEPTAL [Concomitant]
     Dosage: 900 in the morning, 1250 in the evening

REACTIONS (4)
  - Prostatitis [Not Recovered/Not Resolved]
  - Pseudomonas infection [Not Recovered/Not Resolved]
  - Left ventricular failure [Not Recovered/Not Resolved]
  - Drug ineffective [Unknown]
